FAERS Safety Report 4387726-3 (Version None)
Quarter: 2004Q2

REPORT INFORMATION
  Report Type: 
  Country: None (occurrence: None)
  Receive Date: 20040630
  Receipt Date: 20040624
  Transmission Date: 20050107
  Serious: Yes (Hospitalization)
  Sender: FDA-Public Use
  Company Number: SE-MERCK-0406SWE00016

PATIENT
  Age: 53 Year
  Sex: Male

DRUGS (7)
  1. ALPRAZOLAM [Concomitant]
     Route: 065
  2. FLUNITRAZEPAM [Concomitant]
     Route: 065
  3. HYDROXYZINE HYDROCHLORIDE [Concomitant]
     Route: 065
  4. MIRTAZAPINE [Concomitant]
     Route: 065
  5. PROPIOMAZINE MALEATE [Concomitant]
     Route: 065
  6. VIOXX [Suspect]
     Indication: PAIN
     Route: 048
  7. TRAMADOL HYDROCHLORIDE [Concomitant]
     Route: 065

REACTIONS (2)
  - ANAEMIA [None]
  - DUODENAL ULCER [None]
